FAERS Safety Report 6029953-5 (Version None)
Quarter: 2009Q1

REPORT INFORMATION
  Report Type: 
  Country: None (occurrence: None)
  Receive Date: 20090107
  Receipt Date: 20090105
  Transmission Date: 20090719
  Serious: Yes (Life-Threatening, Hospitalization, Other)
  Sender: FDA-Public Use
  Company Number: A0741598A

PATIENT
  Age: 61 Year
  Sex: Female

DRUGS (19)
  1. DYAZIDE [Suspect]
     Indication: DRUG USE FOR UNKNOWN INDICATION
     Dosage: 1CAP PER DAY
     Route: 048
  2. LYRICA [Suspect]
     Indication: RESTLESS LEGS SYNDROME
     Dosage: 50MG PER DAY
     Route: 048
     Dates: start: 20080407
  3. QUININE [Suspect]
     Indication: DRUG USE FOR UNKNOWN INDICATION
     Route: 065
  4. ZEGERID [Suspect]
     Indication: DRUG USE FOR UNKNOWN INDICATION
     Dosage: 20MG UNKNOWN
     Route: 048
  5. ASPIRIN [Concomitant]
  6. COLACE [Concomitant]
  7. PREMARIN [Concomitant]
     Dosage: .625MG UNKNOWN
  8. DILTIAZEM [Concomitant]
  9. ISOSORBIDE DINITRATE [Concomitant]
  10. TRIAMTERENE [Concomitant]
  11. SENNA [Concomitant]
  12. METHADONE HCL [Concomitant]
  13. TIZANIDINE HCL [Concomitant]
  14. WELLBUTRIN [Concomitant]
     Dosage: 150MG TWICE PER DAY
     Route: 048
  15. ZANAFLEX [Concomitant]
  16. LEXAPRO [Concomitant]
     Dosage: 20MG PER DAY
     Route: 048
  17. SPIRIVA [Concomitant]
  18. CHANTIX [Concomitant]
  19. SYNTHROID [Concomitant]
     Dosage: 125MCG UNKNOWN

REACTIONS (30)
  - BLOOD AMYLASE DECREASED [None]
  - BLOOD CALCIUM DECREASED [None]
  - BLOOD MAGNESIUM DECREASED [None]
  - BLOOD PHOSPHORUS DECREASED [None]
  - BLOOD POTASSIUM DECREASED [None]
  - BLOOD SODIUM DECREASED [None]
  - BLOOD UREA DECREASED [None]
  - BRAIN NATRIURETIC PEPTIDE INCREASED [None]
  - CARDIAC FAILURE CONGESTIVE [None]
  - CREPITATIONS [None]
  - DEPRESSED LEVEL OF CONSCIOUSNESS [None]
  - DEPRESSION [None]
  - FIBRIN D DIMER INCREASED [None]
  - FLUID OVERLOAD [None]
  - FOAMING AT MOUTH [None]
  - HAEMOGLOBIN DECREASED [None]
  - HEPATIC CYST [None]
  - HEPATIC ENZYME INCREASED [None]
  - HYPOCHLORAEMIA [None]
  - HYPOGLYCAEMIC COMA [None]
  - HYPONATRAEMIA [None]
  - INSULIN C-PEPTIDE INCREASED [None]
  - LIPASE INCREASED [None]
  - METABOLIC FUNCTION TEST ABNORMAL [None]
  - PAIN [None]
  - PELVIC FLUID COLLECTION [None]
  - PHARYNGEAL DISORDER [None]
  - PLEURAL EFFUSION [None]
  - RALES [None]
  - RENAL CYST [None]
